FAERS Safety Report 6776129-X (Version None)
Quarter: 2010Q2

REPORT INFORMATION
  Report Type: 
  Country: None (occurrence: None)
  Receive Date: 20100615
  Receipt Date: 20100527
  Transmission Date: 20101027
  Serious: Yes (Other)
  Sender: FDA-Public Use
  Company Number: CIB10000011

PATIENT
  Age: 75 Year
  Sex: Female

DRUGS (1)
  1. SECRET SOLID ANTI-PRESPIRANT/DEODRANT, VERSION/SCENT UNK (ALUMINUM ZIR [Suspect]
     Dosage: TOPICAL
     Route: 061

REACTIONS (3)
  - AXILLARY MASS [None]
  - INFECTION [None]
  - MALIGNANT TRANSFORMATION [None]
